FAERS Safety Report 25812256 (Version 3)
Quarter: 2025Q4

REPORT INFORMATION
  Report Type: Spontaneous
  Country: US (occurrence: US)
  Receive Date: 20250917
  Receipt Date: 20251029
  Transmission Date: 20260118
  Serious: No
  Sender: LUPIN
  Company Number: US-LUPIN PHARMACEUTICALS INC.-2025-08248

PATIENT
  Age: 71 Year
  Weight: 81.633 kg

DRUGS (2)
  1. ALBUTEROL SULFATE [Suspect]
     Active Substance: ALBUTEROL SULFATE
     Indication: Chronic obstructive pulmonary disease
     Dosage: (1 TO 2 PUFFS EVERY 4 TO 6 HOURS OR 1 PUFF EVERY 12 HOURS), PRN
  2. METHOCARBAMOL [Concomitant]
     Active Substance: METHOCARBAMOL
     Indication: Product used for unknown indication
     Dosage: (MUSCLE RELAXER 750), PRN
     Route: 065

REACTIONS (8)
  - Hypersensitivity [Unknown]
  - Drug dose omission by device [Unknown]
  - Device delivery system issue [Unknown]
  - Product taste abnormal [Unknown]
  - Off label use [Unknown]
  - Product substitution issue [Unknown]
  - Product quality issue [Unknown]
  - Feeling abnormal [Unknown]
